FAERS Safety Report 17669953 (Version 3)
Quarter: 2022Q3

REPORT INFORMATION
  Report Type: Spontaneous
  Country: US (occurrence: US)
  Receive Date: 20200415
  Receipt Date: 20220802
  Transmission Date: 20221027
  Serious: No
  Sender: FDA-Public Use
  Company Number: US-PFIZER INC-2019442048

PATIENT
  Age: 85 Year
  Sex: Female

DRUGS (3)
  1. TOVIAZ [Suspect]
     Active Substance: FESOTERODINE FUMARATE
     Indication: Urinary incontinence
     Dosage: 8MG TABLET, 1X/DAY
  2. TOVIAZ [Suspect]
     Active Substance: FESOTERODINE FUMARATE
     Dosage: 8 MG, DAILY(TAKE 1 TAB )
     Route: 048
     Dates: start: 20210128
  3. TOVIAZ [Suspect]
     Active Substance: FESOTERODINE FUMARATE
     Dosage: 4 MG

REACTIONS (9)
  - Body height decreased [Unknown]
  - Increased upper airway secretion [Not Recovered/Not Resolved]
  - Peripheral coldness [Unknown]
  - Dry mouth [Not Recovered/Not Resolved]
  - Speech disorder [Unknown]
  - Lip dry [Not Recovered/Not Resolved]
  - Dysphagia [Not Recovered/Not Resolved]
  - Mobility decreased [Unknown]
  - Intentional product misuse [Unknown]
